FAERS Safety Report 4417991-5 (Version None)
Quarter: 2004Q3

REPORT INFORMATION
  Report Type: 
  Country: None (occurrence: None)
  Receive Date: 20040804
  Receipt Date: 20040723
  Transmission Date: 20050211
  Serious: Yes (Hospitalization)
  Sender: FDA-Public Use
  Company Number: 02100-JPN-04-0204

PATIENT
  Age: 76 Year
  Sex: Male

DRUGS (11)
  1. CILOSTAZOL [Suspect]
     Indication: ATHEROSCLEROSIS OBLITERANS
     Dosage: 100 MG ORAL
     Route: 048
  2. LOXOPROFEN SODIUM [Suspect]
     Indication: PAIN
     Dosage: 180 MG ORAL
     Route: 048
     Dates: start: 20030717, end: 20040702
  3. BERAPROST SODIUM [Suspect]
     Indication: ATHEROSCLEROSIS OBLITERANS
     Dosage: 120 MCG ORAL
     Route: 048
     Dates: start: 20030717, end: 20040702
  4. PREDNISOLONE [Concomitant]
  5. CIMETIDINE [Concomitant]
  6. THEOPHYLLINE [Concomitant]
  7. AMLODIPINE BESYLATE [Concomitant]
  8. CLOTIAZEPAM [Concomitant]
  9. BIODIASTASE NAURAL AGENTS COMBINED DRUG [Concomitant]
  10. ASPIRIN [Concomitant]
  11. NAFTOPIDIL [Concomitant]

REACTIONS (9)
  - C-REACTIVE PROTEIN INCREASED [None]
  - EOSINOPHIL COUNT INCREASED [None]
  - HAEMATOCRIT DECREASED [None]
  - HAEMOGLOBIN DECREASED [None]
  - INTERSTITIAL LUNG DISEASE [None]
  - LYMPHOCYTE COUNT DECREASED [None]
  - NEUTROPHIL COUNT INCREASED [None]
  - RED BLOOD CELL COUNT DECREASED [None]
  - WHITE BLOOD CELL COUNT DECREASED [None]
